FAERS Safety Report 11232353 (Version 2)
Quarter: 2015Q3

REPORT INFORMATION
  Report Type: Spontaneous
  Country: US (occurrence: US)
  Receive Date: 20150701
  Receipt Date: 20150814
  Transmission Date: 20151125
  Serious: No
  Sender: FDA-Public Use
  Company Number: US-009507513-1506USA015255

PATIENT

DRUGS (4)
  1. VANCOMYCIN [Suspect]
     Active Substance: VANCOMYCIN
     Indication: ENDOPHTHALMITIS
     Dosage: INTRAVITREAL ANTIBIOTIC (VITREOUS TAP PLUS INTRAVITREAL INJECTION)
  2. AMIKACIN [Suspect]
     Active Substance: AMIKACIN
     Indication: ENDOPHTHALMITIS
     Dosage: INTRAVITREAL ANTIBIOTIC (VITREOUS TAP PLUS INTRAVITREAL INJECTION)
  3. DEXAMETHASONE. [Suspect]
     Active Substance: DEXAMETHASONE
     Indication: ENDOPHTHALMITIS
     Dosage: RECEIVED VIA INTRAVITREAL INJECTION (VITREOUS TAP PLUS INTRAVITREAL INJECTION)
  4. CEFTAZIDIME. [Suspect]
     Active Substance: CEFTAZIDIME
     Indication: ENDOPHTHALMITIS
     Dosage: INTRAVITREAL ANTIBIOTIC (VITREOUS TAP PLUS INTRAVITREAL INJECTION)

REACTIONS (1)
  - Drug ineffective [Unknown]
